FAERS Safety Report 9518293 (Version 1)
Quarter: 2013Q3

REPORT INFORMATION
  Report Type: Spontaneous
  Country: US (occurrence: None)
  Receive Date: 20130910
  Receipt Date: 20130910
  Transmission Date: 20140515
  Serious: No
  Sender: FDA-Public Use
  Company Number: None

PATIENT
  Age: 34 Year
  Sex: Female
  Weight: 68.95 kg

DRUGS (10)
  1. COUMADIN [Suspect]
     Indication: PULMONARY EMBOLISM
     Route: 048
     Dates: start: 20130419
  2. CYMBALTA [Concomitant]
  3. NEURONTIN [Concomitant]
  4. REMERON [Concomitant]
  5. TRAZODONE [Concomitant]
  6. OMEPRAZOLE [Concomitant]
  7. TOPOMAX [Concomitant]
  8. TRAMADOL [Concomitant]
  9. LORATIDINE [Concomitant]
  10. MULTI-VITAMIN [Concomitant]

REACTIONS (7)
  - Migraine [None]
  - Alopecia [None]
  - Fatigue [None]
  - Insomnia [None]
  - Loss of consciousness [None]
  - Memory impairment [None]
  - Road traffic accident [None]
